FAERS Safety Report 25955329 (Version 1)
Quarter: 2025Q4

REPORT INFORMATION
  Report Type: Report from Study
  Country: EU (occurrence: EU)
  Receive Date: 20251024
  Receipt Date: 20251024
  Transmission Date: 20260118
  Serious: Yes (Other)
  Sender: IPSEN BIOPHARMACEUTICALS, INC.
  Company Number: EU-EPIZYME, INC.-2022FREPZ64381015

PATIENT
  Age: 55 Year
  Sex: Female
  Weight: 66 kg

DRUGS (2)
  1. TAZEMETOSTAT [Suspect]
     Active Substance: TAZEMETOSTAT
     Indication: Leiomyosarcoma metastatic
     Dosage: 1600 MG
     Route: 048
     Dates: start: 20220325, end: 20220423
  2. IMFINZI [Suspect]
     Active Substance: DURVALUMAB
     Indication: Leiomyosarcoma metastatic
     Dosage: 1120 MG
     Route: 042
     Dates: start: 20220415, end: 20220415

REACTIONS (3)
  - Myelodysplastic syndrome [Unknown]
  - Anaemia [Unknown]
  - Thrombocytopenia [Unknown]

NARRATIVE: CASE EVENT DATE: 20220415
